FAERS Safety Report 18836144 (Version 1)
Quarter: 2021Q1

REPORT INFORMATION
  Report Type: Spontaneous
  Country: US (occurrence: US)
  Receive Date: 20210203
  Receipt Date: 20210203
  Transmission Date: 20210419
  Serious: Yes (Death)
  Sender: FDA-Public Use
  Company Number: None

PATIENT
  Age: 57 Year
  Sex: Female
  Weight: 94.3 kg

DRUGS (15)
  1. ARIPIPRAZOLE. [Concomitant]
     Active Substance: ARIPIPRAZOLE
  2. HYDROXYZINE HYDROCHLORIDE. [Concomitant]
     Active Substance: HYDROXYZINE HYDROCHLORIDE
  3. ENOXAPARIN INJECTABLE [Concomitant]
  4. COLACE [Concomitant]
     Active Substance: DOCUSATE SODIUM
  5. IBUPROFEN. [Concomitant]
     Active Substance: IBUPROFEN
  6. METRONIDAZOLE. [Concomitant]
     Active Substance: METRONIDAZOLE
  7. TYLENOL [Concomitant]
     Active Substance: ACETAMINOPHEN
  8. HYDROCHLOROTHIAZIDE. [Concomitant]
     Active Substance: HYDROCHLOROTHIAZIDE
  9. OXYCODONE?ACETAMINOPHEN [Concomitant]
     Active Substance: ACETAMINOPHEN\OXYCODONE HYDROCHLORIDE
  10. UDENYCA [Suspect]
     Active Substance: PEGFILGRASTIM-CBQV
     Indication: OVARIAN CANCER
     Dosage: ?          OTHER FREQUENCY:EVERY 21 DAYS;?
     Route: 058
     Dates: start: 20200817, end: 20210203
  11. LOSARTAN. [Concomitant]
     Active Substance: LOSARTAN
  12. LEVOFLOXACIN. [Concomitant]
     Active Substance: LEVOFLOXACIN
  13. SENNA [Concomitant]
     Active Substance: SENNA LEAF\SENNOSIDES\SENNOSIDES A AND B
  14. GLIPIZIDE. [Concomitant]
     Active Substance: GLIPIZIDE
  15. INSULIN ASPART [Concomitant]
     Active Substance: INSULIN ASPART

REACTIONS (1)
  - Death [None]

NARRATIVE: CASE EVENT DATE: 20210203
